FAERS Safety Report 17316512 (Version 1)
Quarter: 2020Q1

REPORT INFORMATION
  Report Type: Spontaneous
  Country: CA (occurrence: CA)
  Receive Date: 20200124
  Receipt Date: 20200124
  Transmission Date: 20200409
  Serious: Yes (Other)
  Sender: FDA-Public Use
  Company Number: CA-CELGENEUS-CAN-20200107367

PATIENT
  Sex: Male

DRUGS (1)
  1. REVLIMID [Suspect]
     Active Substance: LENALIDOMIDE
     Indication: PLASMA CELL MYELOMA
     Dosage: 10 MILLIGRAM
     Route: 048
     Dates: start: 20171025, end: 20200120

REACTIONS (11)
  - Rash pustular [Unknown]
  - Fatigue [Unknown]
  - Bipolar disorder [Unknown]
  - Sleep apnoea syndrome [Unknown]
  - Essential tremor [Unknown]
  - Hypertension [Unknown]
  - Hypercalcaemia [Unknown]
  - Blood parathyroid hormone increased [Unknown]
  - Deep vein thrombosis [Unknown]
  - Plasma cell myeloma [Unknown]
  - Osteoarthritis [Unknown]
